FAERS Safety Report 12784895 (Version 3)
Quarter: 2017Q3

REPORT INFORMATION
  Report Type: Spontaneous
  Country: US (occurrence: US)
  Receive Date: 20160927
  Receipt Date: 20170804
  Transmission Date: 20171127
  Serious: Yes (Other)
  Sender: FDA-Public Use
  Company Number: PHEH2016US024286

PATIENT
  Sex: Female

DRUGS (1)
  1. ZOMETA [Suspect]
     Active Substance: ZOLEDRONIC ACID
     Indication: PLASMA CELL MYELOMA
     Dosage: UNK
     Route: 042
     Dates: start: 2007, end: 201512

REACTIONS (11)
  - Bone pain [Unknown]
  - Disease recurrence [Unknown]
  - Oral disorder [Unknown]
  - Impaired healing [Unknown]
  - Tongue disorder [Unknown]
  - Bone disorder [Unknown]
  - Frustration tolerance decreased [Unknown]
  - Logorrhoea [Unknown]
  - Haemorrhoids [Unknown]
  - Constipation [Unknown]
  - Oral pain [Unknown]
